FAERS Safety Report 8837580 (Version 1)
Quarter: 2012Q4

REPORT INFORMATION
  Report Type: Report from Study
  Country: US (occurrence: US)
  Receive Date: 20121012
  Receipt Date: 20121012
  Transmission Date: 20130627
  Serious: Yes (Hospitalization)
  Sender: FDA-Public Use
  Company Number: US-JNJFOC-20121005193

PATIENT
  Sex: Male
  Weight: 79.38 kg

DRUGS (9)
  1. XARELTO [Suspect]
     Indication: CEREBROVASCULAR ACCIDENT PROPHYLAXIS
     Route: 048
     Dates: start: 20120929
  2. XARELTO [Suspect]
     Indication: CEREBROVASCULAR ACCIDENT PROPHYLAXIS
     Route: 048
     Dates: start: 201207, end: 201209
  3. XARELTO [Suspect]
     Indication: ATRIAL FIBRILLATION
     Route: 048
     Dates: start: 201207, end: 201209
  4. XARELTO [Suspect]
     Indication: ATRIAL FIBRILLATION
     Route: 048
     Dates: start: 20120929
  5. VICODIN [Suspect]
     Indication: BACK PAIN
     Dosage: low dose
     Route: 048
  6. TYLENOL [Suspect]
     Route: 048
  7. TYLENOL [Suspect]
     Indication: BACK PAIN
     Route: 048
     Dates: start: 201207
  8. PANTOPRAZOLE [Concomitant]
  9. UNSPECIFIED BLOOD PRESSURE MEDS [Concomitant]
     Dosage: x3

REACTIONS (3)
  - Back pain [Not Recovered/Not Resolved]
  - Epistaxis [Recovered/Resolved]
  - Blood pressure increased [Recovered/Resolved]
